FAERS Safety Report 14995786 (Version 1)
Quarter: 2018Q2

REPORT INFORMATION
  Report Type: Spontaneous
  Country: US (occurrence: US)
  Receive Date: 20180518
  Receipt Date: 20180518
  Transmission Date: 20180711
  Serious: No
  Sender: FDA-Public Use
  Company Number: None

PATIENT
  Age: 22 Year
  Sex: Female
  Weight: 49.9 kg

DRUGS (8)
  1. DEPAKOTE [Concomitant]
     Active Substance: DIVALPROEX SODIUM
  2. VALIUM [Concomitant]
     Active Substance: DIAZEPAM
  3. CALCIUM [Concomitant]
     Active Substance: CALCIUM
  4. NEURONTIN [Concomitant]
     Active Substance: GABAPENTIN
  5. ABILIFY [Concomitant]
     Active Substance: ARIPIPRAZOLE
  6. VITAMIN C [Concomitant]
     Active Substance: ASCORBIC ACID
  7. MULTI VITAMIN [Concomitant]
     Active Substance: VITAMINS
  8. INGREZZA [Suspect]
     Active Substance: VALBENAZINE
     Indication: TARDIVE DYSKINESIA
     Dosage: ?          QUANTITY:30 DF DOSAGE FORM;?
     Route: 048
     Dates: start: 20180501, end: 20180504

REACTIONS (6)
  - Tardive dyskinesia [None]
  - Abnormal behaviour [None]
  - Condition aggravated [None]
  - Anger [None]
  - Mydriasis [None]
  - Dysphagia [None]

NARRATIVE: CASE EVENT DATE: 20180501
